FAERS Safety Report 4722746-8 (Version None)
Quarter: 2005Q3

REPORT INFORMATION
  Report Type: 
  Country: None (occurrence: None)
  Receive Date: 20050720
  Receipt Date: 20050708
  Transmission Date: 20060218
  Serious: Yes (Hospitalization, Disabling)
  Sender: FDA-Public Use
  Company Number: HQWYE873807MAR05

PATIENT
  Age: 51 Year
  Sex: Female
  Weight: 89.89 kg

DRUGS (6)
  1. EFFEXOR XR [Suspect]
     Indication: ANXIETY
     Dosage: SEE IMAGE
     Route: 048
     Dates: start: 20021101, end: 20050201
  2. EFFEXOR XR [Suspect]
     Indication: MOOD SWINGS
     Dosage: SEE IMAGE
     Route: 048
     Dates: start: 20021101, end: 20050201
  3. EFFEXOR XR [Suspect]
     Indication: ANXIETY
     Dosage: SEE IMAGE
     Route: 048
     Dates: start: 20050201, end: 20050301
  4. EFFEXOR XR [Suspect]
     Indication: MOOD SWINGS
     Dosage: SEE IMAGE
     Route: 048
     Dates: start: 20050201, end: 20050301
  5. HYDROCHLOROTHIAZIDE [Concomitant]
  6. PREMARIN [Concomitant]

REACTIONS (19)
  - ABNORMAL DREAMS [None]
  - ACTIVITIES OF DAILY LIVING IMPAIRED [None]
  - ANXIETY [None]
  - CRYING [None]
  - DEPRESSION [None]
  - DYSPNOEA [None]
  - FATIGUE [None]
  - FEAR [None]
  - FEELING ABNORMAL [None]
  - GASTRIC DISORDER [None]
  - HALLUCINATION, AUDITORY [None]
  - INSOMNIA [None]
  - MOOD SWINGS [None]
  - NIGHTMARE [None]
  - ORAL INTAKE REDUCED [None]
  - PALPITATIONS [None]
  - PARANOIA [None]
  - SLEEP TERROR [None]
  - TREMOR [None]
